FAERS Safety Report 13598427 (Version 1)
Quarter: 2017Q2

REPORT INFORMATION
  Report Type: Spontaneous
  Country: US (occurrence: US)
  Receive Date: 20170531
  Receipt Date: 20170531
  Transmission Date: 20170830
  Serious: Yes (Other)
  Sender: FDA-Public Use
  Company Number: None

PATIENT
  Age: 42 Year
  Sex: Female
  Weight: 78.75 kg

DRUGS (1)
  1. G.E. LISINOPRIL 10 MG [Suspect]
     Active Substance: LISINOPRIL
     Indication: HYPERTENSION
     Dosage: ?          QUANTITY:1 CAPSULE(S);?
     Route: 048

REACTIONS (6)
  - Abdominal pain [None]
  - Gastritis [None]
  - Burning sensation [None]
  - Back pain [None]
  - Oesophagitis [None]
  - Malaise [None]

NARRATIVE: CASE EVENT DATE: 20170524
